FAERS Safety Report 7157848-2 (Version None)
Quarter: 2010Q4

REPORT INFORMATION
  Report Type: 
  Country: None (occurrence: None)
  Receive Date: 20101214
  Receipt Date: 20101025
  Transmission Date: 20110411
  Serious: No
  Sender: FDA-Public Use
  Company Number: A0888605A

PATIENT
  Age: 75 Year
  Sex: Female

DRUGS (1)
  1. NICORETTE (MINT) [Suspect]

REACTIONS (4)
  - DRUG ADMINISTRATION ERROR [None]
  - DYSPHONIA [None]
  - DYSPNOEA [None]
  - HICCUPS [None]
